FAERS Safety Report 24698215 (Version 8)
Quarter: 2025Q3

REPORT INFORMATION
  Report Type: Spontaneous
  Country: US (occurrence: US)
  Receive Date: 20241204
  Receipt Date: 20250924
  Transmission Date: 20251020
  Serious: No
  Sender: PFIZER
  Company Number: US-PFIZER INC-PV202300031517

PATIENT
  Age: 64 Year
  Sex: Female
  Weight: 106.59 kg

DRUGS (2)
  1. BOSULIF [Suspect]
     Active Substance: BOSUTINIB MONOHYDRATE
     Indication: Chronic myeloid leukaemia
     Dates: start: 20131028
  2. BOSULIF [Suspect]
     Active Substance: BOSUTINIB MONOHYDRATE
     Dosage: 100 MG, ALTERNATE DAY (TAKE 1 TABLET BY MOUTH EVERY OTHER DAY)
     Route: 048

REACTIONS (3)
  - Back disorder [Unknown]
  - Pleural effusion [Unknown]
  - Off label use [Unknown]
